FAERS Safety Report 5195402-2 (Version None)
Quarter: 2006Q4

REPORT INFORMATION
  Report Type: 
  Country: None (occurrence: None)
  Receive Date: 20061025
  Receipt Date: 20060717
  Transmission Date: 20070319
  Serious: Yes (Disabling)
  Sender: FDA-Public Use
  Company Number: 2006IP000031

PATIENT
  Age: 60 Year
  Sex: Female

DRUGS (4)
  1. XIBROM [Suspect]
     Indication: DRY EYE
     Dosage: 1 GTT;BID;OPH
     Route: 047
     Dates: start: 20060428, end: 20060508
  2. LOTEMAX [Suspect]
     Indication: KERATITIS
     Dosage: 1 GTT;TID;OPH
     Route: 047
     Dates: start: 20060428, end: 20060508
  3. PATANOL [Concomitant]
  4. REFRESH TEARS [Concomitant]

REACTIONS (5)
  - CATARACT [None]
  - CORNEAL INFECTION [None]
  - CORNEAL PERFORATION [None]
  - CORNEAL SCAR [None]
  - ULCERATIVE KERATITIS [None]
